FAERS Safety Report 22196642 (Version 1)
Quarter: 2023Q2

REPORT INFORMATION
  Report Type: Spontaneous
  Country: ES (occurrence: ES)
  Receive Date: 20230411
  Receipt Date: 20230411
  Transmission Date: 20230721
  Serious: Yes (Other)
  Sender: FDA-Public Use
  Company Number: None

PATIENT
  Age: 55 Year
  Sex: Female
  Weight: 90 kg

DRUGS (2)
  1. ENOXAPARIN SODIUM [Suspect]
     Active Substance: ENOXAPARIN SODIUM
     Indication: Embolism venous
     Dosage: 1 DF
     Route: 058
     Dates: start: 20230215, end: 20230220
  2. INNOHEP [Suspect]
     Active Substance: TINZAPARIN SODIUM
     Indication: Embolism venous
     Dosage: 1 DF
     Route: 058
     Dates: start: 20230220, end: 20230301

REACTIONS (2)
  - Anti-platelet factor 4 antibody positive [Recovering/Resolving]
  - Autoimmune heparin-induced thrombocytopenia [Recovering/Resolving]

NARRATIVE: CASE EVENT DATE: 20230221
